FAERS Safety Report 7261690-1 (Version None)
Quarter: 2011Q1

REPORT INFORMATION
  Report Type: 
  Country: None (occurrence: None)
  Receive Date: 20110130
  Receipt Date: 20101023
  Transmission Date: 20110831
  Serious: No
  Sender: FDA-Public Use
  Company Number: US-ABBOTT-10P-163-0680942-00

PATIENT
  Age: 45 Year
  Sex: Male

DRUGS (4)
  1. HUMIRA [Suspect]
     Indication: COLITIS ULCERATIVE
     Dates: start: 20100901
  2. ENTOCORT EC [Concomitant]
     Indication: PRODUCT USED FOR UNKNOWN INDICATION
  3. ANTHIAPRIN [Concomitant]
     Indication: PRODUCT USED FOR UNKNOWN INDICATION
  4. PREDNISONE [Concomitant]
     Indication: PRODUCT USED FOR UNKNOWN INDICATION

REACTIONS (1)
  - INJECTION SITE PAPULE [None]
